FAERS Safety Report 7132462-3 (Version None)
Quarter: 2010Q4

REPORT INFORMATION
  Report Type: 
  Country: None (occurrence: None)
  Receive Date: 20101202
  Receipt Date: 20101027
  Transmission Date: 20110411
  Serious: Yes (Hospitalization)
  Sender: FDA-Public Use
  Company Number: DE-AMGEN-DEUCT2010002223

PATIENT

DRUGS (11)
  1. ETANERCEPT [Suspect]
     Indication: RHEUMATOID ARTHRITIS
     Route: 058
     Dates: start: 20090709, end: 20090801
  2. ETANERCEPT [Suspect]
     Route: 058
     Dates: start: 20090831, end: 20100412
  3. PREDNISOLONE [Concomitant]
     Indication: RHEUMATOID ARTHRITIS
     Route: 048
     Dates: start: 20031101
  4. ARAVA [Concomitant]
     Indication: RHEUMATOID ARTHRITIS
     Route: 048
     Dates: start: 20030801
  5. IBUPROFEN [Concomitant]
     Indication: RHEUMATOID ARTHRITIS
     Dosage: 800 MG ONE TO THREE TIMES DAILY WHEN NEEDED
     Route: 048
  6. THEOPHYLLINE [Concomitant]
  7. GYNODIAN-DEPOT [Concomitant]
  8. SPIRIVA [Concomitant]
  9. VIANI [Concomitant]
  10. SALBUTAMOL [Concomitant]
  11. ACTRAPHANE HM [Concomitant]

REACTIONS (1)
  - CROHN'S DISEASE [None]
